FAERS Safety Report 8320512-8 (Version None)
Quarter: 2012Q2

REPORT INFORMATION
  Report Type: 
  Country: None (occurrence: None)
  Receive Date: 20120427
  Receipt Date: 20120427
  Transmission Date: 20120825
  Serious: Yes (Other)
  Sender: FDA-Public Use
  Company Number: None

PATIENT
  Age: 27 Year
  Sex: Female
  Weight: 63.502 kg

DRUGS (1)
  1. CYMBALTA [Suspect]
     Indication: MAJOR DEPRESSION
     Dosage: 40 MG
     Route: 048
     Dates: start: 20100901, end: 20120426

REACTIONS (9)
  - PARAESTHESIA [None]
  - ANGER [None]
  - DIZZINESS [None]
  - CRYING [None]
  - LETHARGY [None]
  - TACHYPHRENIA [None]
  - DISTURBANCE IN ATTENTION [None]
  - MOOD ALTERED [None]
  - AGGRESSION [None]
